FAERS Safety Report 15183338 (Version 1)
Quarter: 2018Q3

REPORT INFORMATION
  Report Type: Report from Study
  Country: IT (occurrence: IT)
  Receive Date: 20180723
  Receipt Date: 20180723
  Transmission Date: 20181010
  Serious: Yes (Hospitalization)
  Sender: FDA-Public Use
  Company Number: IT-MYLANLABS-2018M1053575

PATIENT
  Age: 48 Year
  Sex: Male

DRUGS (1)
  1. BRUFEN [Suspect]
     Active Substance: IBUPROFEN
     Indication: ABDOMINAL PAIN UPPER
     Dosage: 2 DF, UNK
     Route: 048

REACTIONS (4)
  - Hyperhidrosis [Recovering/Resolving]
  - Hypotension [Recovering/Resolving]
  - Faeces discoloured [Recovering/Resolving]
  - Discoloured vomit [Recovering/Resolving]

NARRATIVE: CASE EVENT DATE: 20180405
